FAERS Safety Report 16805491 (Version 1)
Quarter: 2019Q3

REPORT INFORMATION
  Report Type: Spontaneous
  Country: CN (occurrence: CN)
  Receive Date: 20190913
  Receipt Date: 20190913
  Transmission Date: 20191005
  Serious: Yes (Hospitalization, Other)
  Sender: FDA-Public Use
  Company Number: CN-PFIZER INC-2019391530

PATIENT
  Age: 66 Year
  Sex: Female
  Weight: 65 kg

DRUGS (5)
  1. NESINA [Suspect]
     Active Substance: ALOGLIPTIN BENZOATE
     Indication: DIABETES MELLITUS
     Dosage: 25 MG, ONCE A DAY
     Route: 048
     Dates: start: 20190803
  2. LIPITOR [Suspect]
     Active Substance: ATORVASTATIN CALCIUM
     Indication: ARTERIAL STIFFNESS
     Dosage: 20 MG, ONCE A NIGHT
     Route: 048
     Dates: start: 20190813, end: 20190902
  3. BAYASPIRIN [Concomitant]
     Active Substance: ASPIRIN
     Indication: ARTERIAL STIFFNESS
     Dosage: 100 MG, ONCE A NIGHT
     Route: 048
     Dates: start: 20190813, end: 20190902
  4. GLUCOPHAGE [Concomitant]
     Active Substance: METFORMIN HYDROCHLORIDE
     Indication: DIABETES MELLITUS
     Dosage: 0.5 G, THREE TIMES A DAY
     Route: 048
     Dates: start: 20190813, end: 20190902
  5. KA BO PING [Concomitant]
     Indication: DIABETES MELLITUS
     Dosage: 50 MG, THREE TIMES A DAY
     Route: 048
     Dates: start: 20190813, end: 20190902

REACTIONS (1)
  - Liver injury [Recovering/Resolving]

NARRATIVE: CASE EVENT DATE: 20190903
